FAERS Safety Report 16571844 (Version 1)
Quarter: 2019Q3

REPORT INFORMATION
  Report Type: Spontaneous
  Country: GB (occurrence: GB)
  Receive Date: 20190715
  Receipt Date: 20190715
  Transmission Date: 20191004
  Serious: Yes (Hospitalization, Other)
  Sender: FDA-Public Use
  Company Number: GB-SA-2019SA185394

PATIENT
  Age: 23 Year
  Sex: Female

DRUGS (1)
  1. LEMTRADA [Suspect]
     Active Substance: ALEMTUZUMAB
     Indication: MULTIPLE SCLEROSIS
     Dosage: UNK
     Route: 041
     Dates: start: 20190408

REACTIONS (11)
  - Basedow^s disease [Unknown]
  - Thyroid hormones increased [Unknown]
  - Dizziness postural [Unknown]
  - Pain in extremity [Unknown]
  - Weight decreased [Unknown]
  - Thrombosis [Unknown]
  - Myocardial infarction [Unknown]
  - Angina pectoris [Unknown]
  - Hyperhidrosis [Unknown]
  - Neck mass [Unknown]
  - Tremor [Unknown]

NARRATIVE: CASE EVENT DATE: 2019
